FAERS Safety Report 4880990-3 (Version None)
Quarter: 2005Q4

REPORT INFORMATION
  Report Type: 
  Country: None (occurrence: None)
  Receive Date: 20051223
  Receipt Date: 20051109
  Transmission Date: 20060501
  Serious: Yes (Hospitalization)
  Sender: FDA-Public Use
  Company Number: 05P-163-0316846-00

PATIENT
  Age: 75 Year
  Sex: Female
  Weight: 79.3795 kg

DRUGS (3)
  1. HUMIRA [Suspect]
     Indication: RHEUMATOID ARTHRITIS
     Dosage: 40 MG, 1 IN 2 WK, SUBCUTANEOUS
     Route: 058
     Dates: start: 20041101, end: 20051028
  2. PAROXETINE HYDROCHLORIDE [Concomitant]
  3. METHOTREXATE [Concomitant]

REACTIONS (3)
  - CYSTITIS [None]
  - PYREXIA [None]
  - STAPHYLOCOCCAL INFECTION [None]
